FAERS Safety Report 23014358 (Version 1)
Quarter: 2023Q4

REPORT INFORMATION
  Report Type: Report from Study
  Country: US (occurrence: US)
  Receive Date: 20231002
  Receipt Date: 20231002
  Transmission Date: 20240110
  Serious: Yes (Hospitalization)
  Sender: FDA-Public Use
  Company Number: US-GILEAD-2023-0645579

PATIENT
  Sex: Male

DRUGS (1)
  1. AZTREONAM LYSINE [Suspect]
     Active Substance: AZTREONAM LYSINE
     Indication: Illness
     Dosage: 75 MG, TID, VIA ALTERA NEBULIZER,  28 DAYS ON AND 28 DAYS OFF
     Route: 065

REACTIONS (2)
  - Infection [Unknown]
  - Dyspnoea [Unknown]
